FAERS Safety Report 21846147 (Version 1)
Quarter: 2023Q1

REPORT INFORMATION
  Report Type: Spontaneous
  Country: DE (occurrence: None)
  Receive Date: 20230111
  Receipt Date: 20230111
  Transmission Date: 20230418
  Serious: Yes (Death, Life-Threatening, Hospitalization, Other)
  Sender: FDA-Public Use
  Company Number: None

PATIENT
  Age: 28 Year
  Sex: Female
  Weight: 95 kg

DRUGS (10)
  1. MEROPENEM [Suspect]
     Active Substance: MEROPENEM
     Indication: Antifungal treatment
  2. MEROPENEM [Suspect]
     Active Substance: MEROPENEM
     Indication: Antifungal treatment
     Dosage: 1 TOTAL
  3. CASPOFUNGIN [Suspect]
     Active Substance: CASPOFUNGIN
     Indication: Antifungal treatment
  4. FLUCONAZOLE [Suspect]
     Active Substance: FLUCONAZOLE
     Indication: Antifungal treatment
  5. FLUCLOXACILLIN [Suspect]
     Active Substance: FLUCLOXACILLIN
     Indication: Staphylococcal bacteraemia
  6. VASOPRESSIN [Suspect]
     Active Substance: VASOPRESSIN
     Dosage: HIGH DOS
  7. PIPERACILLIN SODIUM\TAZOBACTAM SODIUM [Suspect]
     Active Substance: PIPERACILLIN SODIUM\TAZOBACTAM SODIUM
     Indication: Antibiotic therapy
  8. HEPARIN [Suspect]
     Active Substance: HEPARIN SODIUM
  9. NOREPINEPHRINE [Suspect]
     Active Substance: NOREPINEPHRINE
     Dosage: REPORTED AS NORADRENALIN- HIGH DOSE
  10. NOREPINEPHRINE [Suspect]
     Active Substance: NOREPINEPHRINE
     Dosage: NORADRENALIN ?0,25 ?G/KGKG AND MIN.

REACTIONS (9)
  - Pulmonary function test decreased [Unknown]
  - Haemorrhage [Unknown]
  - Multiple organ dysfunction syndrome [Fatal]
  - Staphylococcal bacteraemia [Unknown]
  - Renal failure [Unknown]
  - Brain oedema [Unknown]
  - Acute respiratory distress syndrome [Unknown]
  - Brain injury [Unknown]
  - Thrombocytopenia [Unknown]
